FAERS Safety Report 19168781 (Version 1)
Quarter: 2021Q2

REPORT INFORMATION
  Report Type: Spontaneous
  Country: US (occurrence: US)
  Receive Date: 20210422
  Receipt Date: 20210422
  Transmission Date: 20210717
  Serious: No
  Sender: FDA-Public Use
  Company Number: US-B.I. PHARMACEUTICALS,INC./RIDGEFIELD-2021-BI-096976

PATIENT
  Age: 69 Year
  Sex: Female

DRUGS (1)
  1. CATAPRES [Suspect]
     Active Substance: CLONIDINE HYDROCHLORIDE
     Indication: HYPERTENSION
     Dosage: 0.1MG
     Route: 065

REACTIONS (6)
  - Weight increased [Unknown]
  - Therapeutic response unexpected [Unknown]
  - Rhinorrhoea [Unknown]
  - Blood pressure inadequately controlled [Unknown]
  - Chest pain [Unknown]
  - Aortic valve replacement [Unknown]

NARRATIVE: CASE EVENT DATE: 2010
